FAERS Safety Report 8503703-2 (Version None)
Quarter: 2012Q3

REPORT INFORMATION
  Report Type: 
  Country: None (occurrence: None)
  Receive Date: 20120711
  Receipt Date: 20120705
  Transmission Date: 20120928
  Serious: Yes (Other)
  Sender: FDA-Public Use
  Company Number: PHHY2012DE046927

PATIENT
  Sex: Male

DRUGS (6)
  1. ICANDRA [Suspect]
     Indication: TYPE 2 DIABETES MELLITUS
     Dosage: 1 DF, QD
     Route: 048
     Dates: start: 20111101, end: 20120418
  2. FALITHROM [Concomitant]
     Dosage: 1 DF, QD
     Dates: start: 19850101
  3. PROVAS MAXX [Suspect]
     Dates: end: 20120530
  4. VALSARTAN  AND HYDROCHLOROTHIAZIDE [Concomitant]
     Dates: start: 20120530
  5. LANTUS [Concomitant]
     Dosage: 2 DF, QD
     Route: 058
     Dates: start: 19850101
  6. HUMALOG [Concomitant]
     Dosage: 26/18/20, 4 DF, QD
     Route: 058
     Dates: start: 19850101

REACTIONS (5)
  - HYPOGLYCAEMIA [None]
  - GLOMERULAR FILTRATION RATE DECREASED [None]
  - BLOOD GLUCOSE DECREASED [None]
  - PANCREATIC ENZYMES INCREASED [None]
  - NAUSEA [None]
